FAERS Safety Report 11889623 (Version 1)
Quarter: 2016Q1

REPORT INFORMATION
  Report Type: Spontaneous
  Country: FR (occurrence: FR)
  Receive Date: 20160105
  Receipt Date: 20160105
  Transmission Date: 20160526
  Serious: Yes (Hospitalization)
  Sender: FDA-Public Use
  Company Number: FR-SA-2016SA000654

PATIENT
  Age: 69 Year
  Sex: Male

DRUGS (12)
  1. FOLINORAL [Concomitant]
     Active Substance: LEUCOVORIN CALCIUM
  2. ALFUZOSIN HYDROCHLORIDE. [Concomitant]
     Active Substance: ALFUZOSIN HYDROCHLORIDE
  3. ENDOXAN [Suspect]
     Active Substance: CYCLOPHOSPHAMIDE
     Indication: CHRONIC LYMPHOCYTIC LEUKAEMIA
     Dosage: FREQUENCY:450 MG/D?FROM DAY 1 TO?DAY 3 PER?CYCLE
     Route: 048
     Dates: start: 20150915
  4. ANDROTARDYL [Concomitant]
     Active Substance: TESTOSTERONE
  5. HYDROCORTISONE. [Concomitant]
     Active Substance: HYDROCORTISONE
  6. MABTHERA [Suspect]
     Active Substance: RITUXIMAB
     Indication: CHRONIC LYMPHOCYTIC LEUKAEMIA
     Dosage: FREQUENCY:935 MG, ONCE?PER CYCLE
     Route: 042
     Dates: start: 20150915, end: 20151119
  7. NEULASTA [Suspect]
     Active Substance: PEGFILGRASTIM
     Indication: CHRONIC LYMPHOCYTIC LEUKAEMIA
     Dosage: FREQUENCY:6 MG ONCE PER?CYCLE ON DAY 5
     Route: 058
     Dates: end: 20151123
  8. FLUDARA [Suspect]
     Active Substance: FLUDARABINE PHOSPHATE
     Indication: CHRONIC LYMPHOCYTIC LEUKAEMIA
     Dosage: FREQUENCY:70 MG/D FROM?DAY 1 TO DAY?3 PER CYCLE
     Route: 048
     Dates: start: 20150915
  9. LEVOTHYROX [Concomitant]
     Active Substance: LEVOTHYROXINE
  10. BACTRIM [Concomitant]
     Active Substance: SULFAMETHOXAZOLE\TRIMETHOPRIM
  11. ZELITREX [Concomitant]
     Active Substance: VALACYCLOVIR HYDROCHLORIDE
  12. PRIVIGEN [Concomitant]
     Active Substance: HUMAN IMMUNOGLOBULIN G
     Dosage: 20 G

REACTIONS (2)
  - Chest pain [Recovered/Resolved]
  - Back pain [Recovered/Resolved]

NARRATIVE: CASE EVENT DATE: 20151204
